FAERS Safety Report 8518165 (Version 3)
Quarter: 2013Q1

REPORT INFORMATION
  Report Type: Spontaneous
  Country: US (occurrence: US)
  Receive Date: 20120417
  Receipt Date: 20130227
  Transmission Date: 20140127
  Serious: Yes (Hospitalization)
  Sender: FDA-Public Use
  Company Number: US-ASTRAZENECA-2012SE14133

PATIENT
  Age: 86 Year
  Sex: Female

DRUGS (9)
  1. NEXIUM [Suspect]
     Route: 048
  2. ATENOLOL [Suspect]
     Route: 048
  3. LISINOPRIL [Suspect]
     Route: 048
  4. HYDROCHLOROTHIAZIDE [Concomitant]
  5. WARFARIN [Concomitant]
  6. FUROSEMIDE [Concomitant]
  7. AMLODIPINE BESYLATE [Concomitant]
  8. ALBUTEROL [Concomitant]
  9. OSCAL 500 D [Concomitant]

REACTIONS (5)
  - Pneumonia [Unknown]
  - Blood pressure increased [Unknown]
  - Chest pain [Unknown]
  - Chest discomfort [Unknown]
  - Drug dose omission [Unknown]
